FAERS Safety Report 8607632-5 (Version None)
Quarter: 2012Q3

REPORT INFORMATION
  Report Type: 
  Country: None (occurrence: None)
  Receive Date: 20120809
  Receipt Date: 20120809
  Transmission Date: 20120928
  Serious: Yes (Hospitalization)
  Sender: FDA-Public Use
  Company Number: None

PATIENT
  Age: 78 Year
  Sex: Male
  Weight: 74.9 kg

DRUGS (1)
  1. METHOTREXATE [Suspect]
     Dosage: 15 MG QWEEK PO
     Route: 048
     Dates: start: 20041113, end: 20110709

REACTIONS (2)
  - PULMONARY TOXICITY [None]
  - RESPIRATORY FAILURE [None]
